FAERS Safety Report 11572300 (Version 1)
Quarter: 2015Q3

REPORT INFORMATION
  Report Type: Spontaneous
  Country: CH (occurrence: CH)
  Receive Date: 20150929
  Receipt Date: 20150929
  Transmission Date: 20151125
  Serious: Yes (Death, Hospitalization, Other)
  Sender: FDA-Public Use
  Company Number: CH-TEVA-596384ISR

PATIENT
  Age: 74 Year
  Sex: Male

DRUGS (14)
  1. ATORVASTATIN [Suspect]
     Active Substance: ATORVASTATIN
     Indication: DYSLIPIDAEMIA
     Dosage: 40 MILLIGRAM DAILY;
     Route: 048
     Dates: end: 201508
  2. METOJECT [Suspect]
     Active Substance: METHOTREXATE SODIUM
     Indication: RHEUMATOID ARTHRITIS
     Route: 058
     Dates: start: 2013, end: 201508
  3. ASPIRIN CARDIO [Concomitant]
     Active Substance: ASPIRIN
     Dosage: 100 MILLIGRAM DAILY; CONTINUING
     Route: 048
  4. ALBUMIN [Concomitant]
     Active Substance: ALBUMIN (HUMAN)
     Route: 065
  5. TERLIPRESSIN [Concomitant]
     Active Substance: TERLIPRESSIN
     Dosage: 4X1MG
     Route: 042
  6. GLUCOSE [Concomitant]
     Active Substance: DEXTROSE
     Route: 065
  7. FLAGYL [Interacting]
     Active Substance: METRONIDAZOLE\METRONIDAZOLE HYDROCHLORIDE
     Indication: DIVERTICULITIS
     Dosage: 1000 MILLIGRAM DAILY;
     Route: 048
     Dates: start: 20150825, end: 20150831
  8. DUPHALAC [Concomitant]
     Active Substance: LACTULOSE
     Dosage: 2X20ML
     Route: 065
  9. NEXIUM [Concomitant]
     Active Substance: ESOMEPRAZOLE MAGNESIUM
     Dosage: 40MG
     Route: 065
  10. NORVASC [Suspect]
     Active Substance: AMLODIPINE BESYLATE
     Indication: HYPERTENSIVE HEART DISEASE
     Route: 048
     Dates: end: 20150907
  11. KONAKION [Concomitant]
     Active Substance: PHYTONADIONE
     Dosage: 10MG
     Route: 042
  12. FRAGMIN [Concomitant]
     Active Substance: DALTEPARIN SODIUM
     Dosage: 2500 UNITS
     Route: 065
  13. FELDEN 20MG [Suspect]
     Active Substance: PIROXICAM
     Indication: RHEUMATOID ARTHRITIS
     Dosage: 20 MILLIGRAM DAILY;
     Route: 048
     Dates: start: 1995, end: 201508
  14. CO-AMOXI-MEPHA [Interacting]
     Active Substance: AMOXICILLIN\CLAVULANATE POTASSIUM
     Indication: URINARY TRACT INFECTION BACTERIAL
     Dosage: 3 DOSAGE FORMS DAILY; DF: 125MG CLAVULANIC ACID, 500MG AMOXICILLIN TRIHYDRATE
     Route: 048
     Dates: start: 20150825, end: 20150831

REACTIONS (6)
  - Hepatic failure [Fatal]
  - Renal failure [Fatal]
  - Hepatitis cholestatic [Fatal]
  - Drug interaction [Unknown]
  - Jaundice [Not Recovered/Not Resolved]
  - Clostridium difficile colitis [Unknown]

NARRATIVE: CASE EVENT DATE: 201508
